FAERS Safety Report 18230492 (Version 1)
Quarter: 2020Q3

REPORT INFORMATION
  Report Type: Spontaneous
  Country: GB (occurrence: US)
  Receive Date: 20200904
  Receipt Date: 20200904
  Transmission Date: 20201103
  Serious: Yes (Other)
  Sender: FDA-Public Use
  Company Number: US-ASTELLAS-2020US029996

PATIENT
  Age: 73 Year
  Sex: Female

DRUGS (1)
  1. ERLOTINIB [Suspect]
     Active Substance: ERLOTINIB
     Indication: NON-SMALL CELL LUNG CANCER METASTATIC
     Dosage: UNK UNK, UNKNOWN FREQ.
     Route: 048

REACTIONS (8)
  - Hypersensitivity vasculitis [Recovered/Resolved]
  - Melanocytic naevus [Unknown]
  - Xerosis [Unknown]
  - Pruritus [Unknown]
  - Paronychia [Unknown]
  - Naevoid melanoma [Unknown]
  - Hair texture abnormal [Unknown]
  - Dermatitis acneiform [Unknown]
